FAERS Safety Report 21643903 (Version 1)
Quarter: 2022Q4

REPORT INFORMATION
  Report Type: Spontaneous
  Country: JP (occurrence: JP)
  Receive Date: 20221125
  Receipt Date: 20221125
  Transmission Date: 20230113
  Serious: No
  Sender: FDA-Public Use
  Company Number: JP-MSD-2211JPN002914J

PATIENT
  Age: 77 Year
  Sex: Male

DRUGS (1)
  1. LAGEVRIO [Suspect]
     Active Substance: MOLNUPIRAVIR
     Dosage: UNK, ONCE
     Route: 048

REACTIONS (2)
  - Intentional product misuse [Unknown]
  - Product use complaint [Unknown]
